FAERS Safety Report 7503496-1 (Version None)
Quarter: 2011Q2

REPORT INFORMATION
  Report Type: 
  Country: None (occurrence: None)
  Receive Date: 20110525
  Receipt Date: 20110515
  Transmission Date: 20111010
  Serious: Yes (Hospitalization)
  Sender: FDA-Public Use
  Company Number: DZ-ROCHE-773150

PATIENT
  Sex: Female

DRUGS (2)
  1. COPEGUS [Suspect]
     Indication: HEPATITIS C
     Dosage: FREQUENCY: PER DAY
     Route: 048
     Dates: start: 20110301, end: 20110418
  2. PEGASYS [Suspect]
     Indication: HEPATITIS C
     Route: 058
     Dates: start: 20110301, end: 20110418

REACTIONS (3)
  - INFLUENZA LIKE ILLNESS [None]
  - PNEUMOCYSTIS JIROVECI INFECTION [None]
  - HAEMOPTYSIS [None]
